FAERS Safety Report 9358457 (Version 1)
Quarter: 2013Q2

REPORT INFORMATION
  Report Type: Spontaneous
  Country: DE (occurrence: DE)
  Receive Date: 20130620
  Receipt Date: 20130620
  Transmission Date: 20140414
  Serious: Yes (Other)
  Sender: FDA-Public Use
  Company Number: DE-TEVA-412576GER

PATIENT
  Age: 58 Year
  Sex: Female

DRUGS (2)
  1. DICLOFENAC [Suspect]
     Route: 048
  2. ETANERCEPT [Suspect]
     Route: 058

REACTIONS (2)
  - Pyoderma gangrenosum [Recovering/Resolving]
  - Inflammatory bowel disease [Unknown]
